FAERS Safety Report 6571017-6 (Version None)
Quarter: 2010Q1

REPORT INFORMATION
  Report Type: 
  Country: None (occurrence: None)
  Receive Date: 20100204
  Receipt Date: 20100201
  Transmission Date: 20100710
  Serious: Yes (Death)
  Sender: FDA-Public Use
  Company Number: NL-B.I. PHARMACEUTICALS,INC./RIDGEFIELD-2010-NL-00044NL

PATIENT
  Sex: Female

DRUGS (2)
  1. MICARDIS [Suspect]
  2. A LOT OF OTHER NON FURTHER SPECIFIED MEDIATIONS [Concomitant]

REACTIONS (2)
  - ARTHRALGIA [None]
  - DEATH [None]
